FAERS Safety Report 16452148 (Version 1)
Quarter: 2019Q2

REPORT INFORMATION
  Report Type: Spontaneous
  Country: CO (occurrence: CO)
  Receive Date: 20190619
  Receipt Date: 20190619
  Transmission Date: 20190711
  Serious: Yes (Hospitalization)
  Sender: FDA-Public Use
  Company Number: CO-GILEAD-2019-0408337

PATIENT
  Age: 26 Year
  Sex: Female

DRUGS (5)
  1. AMBRISENTAN [Suspect]
     Active Substance: AMBRISENTAN
     Indication: PULMONARY ARTERIAL HYPERTENSION
     Dosage: 5 MG, QD
     Route: 065
     Dates: start: 20190313
  2. FUROSEMIDE. [Concomitant]
     Active Substance: FUROSEMIDE
  3. ENALAPRIL [Concomitant]
     Active Substance: ENALAPRIL
  4. SILDENAFIL. [Concomitant]
     Active Substance: SILDENAFIL
  5. OXYGEN. [Concomitant]
     Active Substance: OXYGEN

REACTIONS (9)
  - Chills [Unknown]
  - Asthenia [Unknown]
  - Respiratory disorder [Unknown]
  - Headache [Unknown]
  - Malaise [Unknown]
  - Chest pain [Unknown]
  - Oxygen saturation abnormal [Unknown]
  - Hypertension [Unknown]
  - Pyrexia [Unknown]
